FAERS Safety Report 11230491 (Version 1)
Quarter: 2015Q2

REPORT INFORMATION
  Report Type: Report from Study
  Country: US (occurrence: None)
  Receive Date: 20150629
  Receipt Date: 20150629
  Transmission Date: 20150821
  Serious: Yes (Other)
  Sender: FDA-Public Use
  Company Number: KAD201506-001886

PATIENT
  Sex: Male

DRUGS (9)
  1. VIEKIRA PAK [Suspect]
     Active Substance: DASABUVIR\OMBITASVIR\PARITAPREVIR\RITONAVIR
     Indication: HEPATITIS C
     Dosage: TABLET, AS DIRECTED IN AM AND PM (TWO IN ONE DAY)
     Route: 048
  2. BENICAR [Suspect]
     Active Substance: OLMESARTAN MEDOXOMIL
  3. VITAMIN C [Suspect]
     Active Substance: ASCORBIC ACID
  4. RIBAVIRIN (RIBAVIRIN) [Suspect]
     Active Substance: RIBAVIRIN
     Indication: HEPATITIS C
  5. METFORMIN [Suspect]
     Active Substance: METFORMIN HYDROCHLORIDE
  6. VITAMIN D (ERGOCALCIFEROL) [Suspect]
     Active Substance: ERGOCALCIFEROL
  7. IRON (IRON) [Suspect]
     Active Substance: IRON
  8. OXYCODONE (OXYCODONE) [Suspect]
     Active Substance: OXYCODONE
  9. LANSOPRAZOLE (LANSOPRAZOLE) [Suspect]
     Active Substance: LANSOPRAZOLE

REACTIONS (4)
  - Weight decreased [None]
  - Drug interaction [None]
  - Feeling abnormal [None]
  - Anaemia [None]
